FAERS Safety Report 9468411 (Version 2)
Quarter: 2014Q1

REPORT INFORMATION
  Report Type: Spontaneous
  Country: US (occurrence: US)
  Receive Date: 20130821
  Receipt Date: 20140225
  Transmission Date: 20141002
  Serious: Yes (Other)
  Sender: FDA-Public Use
  Company Number: US-NAPPMUNDI-USA-2013-0105475

PATIENT
  Sex: Female

DRUGS (3)
  1. OXYCONTIN (NDA 22-272) [Suspect]
     Indication: CANCER PAIN
     Dosage: 20 MG, BID
     Route: 048
  2. OXYCODONE HCL IMMEDIATE RELEASE (91-490) [Suspect]
     Indication: PRODUCT USED FOR UNKNOWN INDICATION
     Dosage: 15 MG, BID
     Route: 048
  3. ROXICODONE [Suspect]
     Indication: PRODUCT USED FOR UNKNOWN INDICATION
     Dosage: 15 MG, BID PRN
     Route: 048

REACTIONS (13)
  - Neoplasm malignant [Unknown]
  - Spinal fracture [Unknown]
  - Cervical vertebral fracture [Unknown]
  - Drug withdrawal syndrome [Not Recovered/Not Resolved]
  - Road traffic accident [Unknown]
  - Poor quality sleep [Unknown]
  - Dyskinesia [Unknown]
  - Crying [Unknown]
  - Moaning [Unknown]
  - Pain [Unknown]
  - Diarrhoea [Unknown]
  - Detoxification [Unknown]
  - Malaise [Unknown]
